FAERS Safety Report 6327175-1 (Version None)
Quarter: 2009Q3

REPORT INFORMATION
  Report Type: 
  Country: None (occurrence: None)
  Receive Date: 20090825
  Receipt Date: 20090807
  Transmission Date: 20100115
  Serious: Yes (Other)
  Sender: FDA-Public Use
  Company Number: NL-JNJFOC-20090807006

PATIENT
  Age: 88 Year
  Sex: Female

DRUGS (8)
  1. DAKTARIN [Suspect]
     Route: 065
  2. DAKTARIN [Suspect]
     Indication: ERYTHEMA
     Route: 065
  3. ACENOCOUMAROL [Interacting]
     Indication: VASCULAR OCCLUSION
     Route: 065
  4. SIMVASTATIN [Concomitant]
  5. NITRENDIPINE [Concomitant]
  6. ALENDRONIC ACID [Concomitant]
  7. TOLBUTAMIDE [Concomitant]
  8. IRBESARTAN - HYDROCHLOROTHIAZIDE [Concomitant]

REACTIONS (3)
  - DRUG INTERACTION [None]
  - EPISTAXIS [None]
  - INTERNATIONAL NORMALISED RATIO INCREASED [None]
